FAERS Safety Report 14924417 (Version 1)
Quarter: 2018Q2

REPORT INFORMATION
  Report Type: Spontaneous
  Country: FR (occurrence: FR)
  Receive Date: 20180522
  Receipt Date: 20180522
  Transmission Date: 20180711
  Serious: Yes (Hospitalization)
  Sender: FDA-Public Use
  Company Number: FR-LANNETT COMPANY, INC.-FR-2018LAN000696

PATIENT
  Sex: Male

DRUGS (7)
  1. MARAVIROC [Concomitant]
     Active Substance: MARAVIROC
     Indication: ANTIRETROVIRAL THERAPY
     Dosage: 150 MG, (EVERY 12 HOURS)
     Route: 065
  2. LOPINAVIR AND RITONAVIR [Suspect]
     Active Substance: LOPINAVIR\RITONAVIR
     Indication: ANTIRETROVIRAL THERAPY
     Dosage: 600/100MG EVERY 24H (WITH DARUNAVIR)
     Route: 065
  3. AMPHOTERICIN B. [Concomitant]
     Active Substance: AMPHOTERICIN B
     Indication: HISTOPLASMOSIS
     Dosage: 6 MG/KG, UNK
     Route: 065
  4. DARUNAVIR [Suspect]
     Active Substance: DARUNAVIR
     Indication: ANTIRETROVIRAL THERAPY
     Dosage: 600/100MG EVERY 12 H (WITH RITONAVIR)
     Route: 065
  5. ITRACONAZOLE. [Suspect]
     Active Substance: ITRACONAZOLE
     Dosage: 200 MG, (EVERY 8 HOURS)
  6. ITRACONAZOLE. [Suspect]
     Active Substance: ITRACONAZOLE
     Indication: HISTOPLASMOSIS
     Dosage: 300 MG, (EVERY 8 HOURS)
     Route: 048
  7. ABACAVIR/LAMIVUDINE [Concomitant]
     Active Substance: ABACAVIR\LAMIVUDINE
     Indication: ANTIRETROVIRAL THERAPY
     Dosage: 600/100MG Q12H
     Route: 065

REACTIONS (4)
  - Diarrhoea [Recovered/Resolved]
  - Somnolence [Recovering/Resolving]
  - Drug interaction [Recovering/Resolving]
  - Confusional state [Recovered/Resolved]
